FAERS Safety Report 14641461 (Version 3)
Quarter: 2019Q2

REPORT INFORMATION
  Report Type: Spontaneous
  Country: US (occurrence: US)
  Receive Date: 20180315
  Receipt Date: 20190404
  Transmission Date: 20190711
  Serious: Yes (Other)
  Sender: FDA-Public Use
  Company Number: US-PFIZER INC-2018107198

PATIENT
  Sex: Male

DRUGS (22)
  1. PREDNISONE. [Concomitant]
     Active Substance: PREDNISONE
     Indication: STEROID THERAPY
     Dosage: UNK
     Dates: start: 2006, end: 2016
  2. ZEBETA [Concomitant]
     Active Substance: BISOPROLOL FUMARATE
     Indication: HYPERTENSION
     Dosage: UNK
     Dates: start: 2005, end: 2013
  3. AMLODIPINE [Concomitant]
     Active Substance: AMLODIPINE BESYLATE
     Indication: HYPERTENSION
     Dosage: UNK
     Dates: start: 2009, end: 2010
  4. NORVASC [Concomitant]
     Active Substance: AMLODIPINE BESYLATE
     Indication: HYPERTENSION
     Dosage: UNK
     Dates: start: 2009, end: 2010
  5. PEPCID [ALUMINIUM HYDROXIDE GEL, DRIED;MAGNESIUM CARBONATE] [Concomitant]
     Active Substance: ALUMINUM HYDROXIDE\MAGNESIUM CARBONATE
     Dosage: UNK
  6. AVODART [Concomitant]
     Active Substance: DUTASTERIDE
     Dosage: UNK
     Dates: start: 2010, end: 2012
  7. DIOVAN [Concomitant]
     Active Substance: VALSARTAN
     Indication: HYPERTENSION
     Dosage: UNK
     Dates: start: 2003, end: 2004
  8. NAPROSYN E [Concomitant]
     Active Substance: NAPROXEN
     Indication: PAIN
     Dosage: UNK
     Dates: end: 2010
  9. LANSOPRAZOLE. [Suspect]
     Active Substance: LANSOPRAZOLE
     Indication: GASTROOESOPHAGEAL REFLUX DISEASE
     Dosage: 30 MG, UNK
     Route: 048
     Dates: start: 2011, end: 2014
  10. PROTONIX [Suspect]
     Active Substance: PANTOPRAZOLE SODIUM
     Indication: GASTROOESOPHAGEAL REFLUX DISEASE
     Dosage: 40 MG, UNK
     Route: 048
     Dates: start: 2006
  11. PREVACID 24 HR [Suspect]
     Active Substance: LANSOPRAZOLE
     Indication: GASTROOESOPHAGEAL REFLUX DISEASE
     Dosage: UNK
     Route: 048
     Dates: start: 2009, end: 2011
  12. FLOMAX [MORNIFLUMATE] [Concomitant]
     Active Substance: MORNIFLUMATE
     Indication: PROSTATIC OPERATION
     Dosage: UNK
     Dates: start: 2010, end: 2011
  13. BISOPROLOL [Concomitant]
     Active Substance: BISOPROLOL
     Indication: HYPERTENSION
     Dosage: UNK
     Dates: start: 2005, end: 2013
  14. ACETAMINOPHEN. [Concomitant]
     Active Substance: ACETAMINOPHEN
     Indication: PAIN
     Dosage: UNK
     Dates: end: 2010
  15. VIT D [Concomitant]
     Active Substance: VITAMIN D NOS
     Indication: RENAL DISORDER
     Dosage: UNK
     Dates: end: 2012
  16. PREVACID [Suspect]
     Active Substance: LANSOPRAZOLE
     Indication: GASTROOESOPHAGEAL REFLUX DISEASE
     Dosage: 30 MG, UNK
     Route: 048
     Dates: start: 2006, end: 2009
  17. LISINOPRIL. [Concomitant]
     Active Substance: LISINOPRIL
     Indication: HYPERTENSION
     Dosage: UNK
     Dates: start: 2005, end: 2016
  18. ALLOPURINOL. [Concomitant]
     Active Substance: ALLOPURINOL
     Indication: GOUT
     Dosage: UNK
     Dates: start: 2006, end: 2010
  19. TAMSULOSIN [Concomitant]
     Active Substance: TAMSULOSIN
     Indication: PROSTATIC OPERATION
     Dosage: UNK
     Dates: start: 2010, end: 2011
  20. AVODART [Concomitant]
     Active Substance: DUTASTERIDE
     Indication: PROSTATIC OPERATION
     Dosage: UNK
     Dates: start: 2004, end: 2010
  21. ASPIRINE [Concomitant]
     Active Substance: ASPIRIN
     Indication: PAIN
     Dosage: UNK
     Dates: end: 2010
  22. INDOMETACIN [Concomitant]
     Active Substance: INDOMETHACIN
     Indication: PAIN
     Dosage: UNK
     Dates: start: 2003, end: 2006

REACTIONS (3)
  - Renal injury [Unknown]
  - Acute kidney injury [Unknown]
  - Chronic kidney disease [Unknown]

NARRATIVE: CASE EVENT DATE: 2011
